FAERS Safety Report 7710570-3 (Version None)
Quarter: 2011Q3

REPORT INFORMATION
  Report Type: 
  Country: None (occurrence: None)
  Receive Date: 20110825
  Receipt Date: 20110817
  Transmission Date: 20111222
  Serious: Yes (Hospitalization)
  Sender: FDA-Public Use
  Company Number: US-BAYER-2011-069422

PATIENT
  Age: 47 Year
  Sex: Female

DRUGS (1)
  1. MIRENA [Suspect]
     Indication: MENSTRUAL DISORDER
     Dosage: 20 ?G/D, CONT
     Route: 015
     Dates: start: 20091101, end: 20100813

REACTIONS (3)
  - DEVICE DISLOCATION [None]
  - VAGINAL HAEMORRHAGE [None]
  - PAIN [None]
